FAERS Safety Report 15335362 (Version 2)
Quarter: 2020Q1

REPORT INFORMATION
  Report Type: Spontaneous
  Country: CH (occurrence: CH)
  Receive Date: 20180830
  Receipt Date: 20200220
  Transmission Date: 20200409
  Serious: Yes (Hospitalization, Other)
  Sender: FDA-Public Use
  Company Number: CH-009507513-1808CHE010410

PATIENT
  Age: 25 Year
  Sex: Male

DRUGS (55)
  1. LASIX [Suspect]
     Active Substance: FUROSEMIDE
     Dosage: 3 MG, QH
     Route: 041
     Dates: start: 20180714
  2. WELLVONE [Suspect]
     Active Substance: ATOVAQUONE
     Dosage: 1500 MG,QD
     Route: 048
     Dates: start: 20180818, end: 20181011
  3. METRONIDAZOLE. [Suspect]
     Active Substance: METRONIDAZOLE
     Dosage: 500 MILLIGRAM, TID
     Dates: start: 20180802, end: 20180802
  4. SOLU-CORTEF [Concomitant]
     Active Substance: HYDROCORTISONE SODIUM SUCCINATE
     Dosage: UNK
  5. EXCIPIAL [Concomitant]
     Dosage: UNK
  6. SYMBICORT [Concomitant]
     Active Substance: BUDESONIDE\FORMOTEROL FUMARATE DIHYDRATE
     Dosage: UNK
  7. REMERON [Suspect]
     Active Substance: MIRTAZAPINE
     Dosage: 15 MG, QD
     Route: 048
     Dates: start: 20180731
  8. NPLATE [Concomitant]
     Active Substance: ROMIPLOSTIM
     Dosage: UNK
  9. ZITHROMAX [Concomitant]
     Active Substance: AZITHROMYCIN DIHYDRATE
     Dosage: UNK
  10. JAKAVI [Concomitant]
     Active Substance: RUXOLITINIB
     Dosage: UNK
  11. NEPHROTRANS [Concomitant]
     Active Substance: SODIUM BICARBONATE
     Dosage: UNK
  12. TESTOGEL [Concomitant]
     Active Substance: TESTOSTERONE
     Dosage: UNK
  13. CANCIDAS [Suspect]
     Active Substance: CASPOFUNGIN ACETATE
     Dosage: 100 MILLIGRAM, QD
     Route: 042
     Dates: start: 20180712
  14. NOXAFIL [Suspect]
     Active Substance: POSACONAZOLE
     Dosage: 400 MILLIGRAM, QD
     Dates: start: 20180727, end: 20180730
  15. CALCIUM GLUCONATE. [Concomitant]
     Active Substance: CALCIUM GLUCONATE
     Dosage: UNK
     Dates: start: 20180725
  16. HEPARIN [Concomitant]
     Active Substance: HEPARIN SODIUM
     Dosage: UNK
  17. EUTHYROX [Concomitant]
     Active Substance: LEVOTHYROXINE SODIUM
     Dosage: UNK
  18. IPRAMOL (ALBUTEROL SULFATE (+) IPRATROPIUM BROMIDE) [Concomitant]
     Dosage: UNK
  19. PERFALGAN [Concomitant]
     Active Substance: ACETAMINOPHEN
     Dosage: UNK UNK, AS NECESSARY
  20. AMBISOME [Suspect]
     Active Substance: AMPHOTERICIN B
     Dosage: 500 MILLIGRAM, QD
     Route: 041
     Dates: start: 20180719
  21. TAVEGYL [Concomitant]
     Active Substance: CLEMASTINE FUMARATE
     Dosage: UNK
     Dates: start: 201806
  22. DEXTROSE. [Concomitant]
     Active Substance: DEXTROSE
     Dosage: UNK
  23. MORPHINE [Concomitant]
     Active Substance: MORPHINE
     Dosage: 1 MILLIGRAM, QH
     Route: 041
     Dates: start: 20180730
  24. ADDAVEN [Concomitant]
     Active Substance: ELECTROLYTES NOS\MINERALS
     Dosage: UNK
  25. LAXOBERON [Concomitant]
     Active Substance: SODIUM PICOSULFATE
     Dosage: UNK, AS NECESSARY
  26. TIENAM [Suspect]
     Active Substance: CILASTATIN SODIUM\IMIPENEM
     Dosage: UNK
     Route: 042
     Dates: start: 20180718, end: 20180723
  27. METRONIDAZOLE. [Suspect]
     Active Substance: METRONIDAZOLE
     Dosage: 500 MILLIGRAM, TID
     Dates: start: 20180821, end: 20180903
  28. COPEGUS [Suspect]
     Active Substance: RIBAVIRIN
     Dosage: 300 MILLIGRAM, TID
     Dates: start: 20180726, end: 20180729
  29. ARANESP [Concomitant]
     Active Substance: DARBEPOETIN ALFA
     Dosage: UNK
  30. KIOVIG [Concomitant]
     Active Substance: HUMAN IMMUNOGLOBULIN G
     Dosage: UNK
     Dates: start: 20180719
  31. MORPHINE [Concomitant]
     Active Substance: MORPHINE
     Dosage: 2 MG, IN TOTAL
     Route: 042
     Dates: start: 20180731
  32. MYCOSTATINE [Concomitant]
     Active Substance: NYSTATIN
     Dosage: UNK
  33. TRAMAL [Concomitant]
     Active Substance: TRAMADOL
     Dosage: UNK, AS NECESSARY
  34. TIENAM [Suspect]
     Active Substance: CILASTATIN SODIUM\IMIPENEM
     Dosage: 500 MILLIGRAM, QID
     Route: 042
     Dates: start: 20180730, end: 20180821
  35. JADENU [Suspect]
     Active Substance: DEFERASIROX
     Dosage: UNK UNK, QD
     Route: 048
     Dates: start: 20180617, end: 20180702
  36. AMINOMIX 1 [Concomitant]
     Dosage: UNK
     Dates: start: 20180731
  37. NEXIUM [Concomitant]
     Active Substance: ESOMEPRAZOLE MAGNESIUM
     Dosage: UNK
  38. BUDENOFALK [Concomitant]
     Active Substance: BUDESONIDE
     Dosage: UNK
  39. SINGULAIR [Concomitant]
     Active Substance: MONTELUKAST SODIUM
     Dosage: UNK
  40. TEMESTA [Concomitant]
     Dosage: UNK, AS NECESSARY
  41. NOXAFIL [Suspect]
     Active Substance: POSACONAZOLE
     Dosage: 300 MILLIGRAM, QD
     Dates: start: 20180716, end: 20180727
  42. TAVEGYL [Concomitant]
     Active Substance: CLEMASTINE FUMARATE
     Dosage: UNK, AS NECESSARY
  43. MAGNESIUM SULFATE. [Concomitant]
     Active Substance: MAGNESIUM SULFATE
     Dosage: UNK
  44. CERNEVIT [Concomitant]
     Active Substance: VITAMINS
     Dosage: UNK
  45. KONAKION [Concomitant]
     Active Substance: PHYTONADIONE
     Dosage: UNK
  46. GUTRON [Concomitant]
     Active Substance: MIDODRINE
     Dosage: UNK
  47. LACRYVISC [Concomitant]
     Active Substance: CARBOMER
     Dosage: UNK
  48. AMIKIN [Concomitant]
     Active Substance: AMIKACIN SULFATE
     Dosage: UNK UNK, AS NECESSARY(PRN)
  49. PASPERTIN [Concomitant]
     Dosage: UNK, AS NECESSARY
  50. ZOLPIDEM [Concomitant]
     Active Substance: ZOLPIDEM TARTRATE
     Dosage: UNK UNK, AS NECESSARY
  51. REMERON [Suspect]
     Active Substance: MIRTAZAPINE
     Dosage: 15 MG, QD
     Route: 048
     Dates: start: 20180725, end: 20180729
  52. ACYCLOVIR. [Suspect]
     Active Substance: ACYCLOVIR
     Dosage: 250 MILLIGRAM, TID
     Route: 042
     Dates: start: 20180727
  53. WELLVONE [Suspect]
     Active Substance: ATOVAQUONE
     Dosage: 1500 MG,QD
     Route: 048
     Dates: start: 20180702, end: 20180729
  54. METRONIDAZOLE. [Suspect]
     Active Substance: METRONIDAZOLE
     Dosage: 500 MILLIGRAM, TID
     Dates: start: 20180724, end: 20180731
  55. MEROPENEM. [Concomitant]
     Active Substance: MEROPENEM
     Dosage: UNK, AS NECESSARY

REACTIONS (1)
  - Pancreatitis [Recovered/Resolved]

NARRATIVE: CASE EVENT DATE: 20180730
